FAERS Safety Report 14920980 (Version 3)
Quarter: 2019Q2

REPORT INFORMATION
  Report Type: Report from Study
  Country: US (occurrence: US)
  Receive Date: 20180521
  Receipt Date: 20190606
  Transmission Date: 20190711
  Serious: No
  Sender: FDA-Public Use
  Company Number: PHEH2018US019211

PATIENT
  Sex: Female

DRUGS (2)
  1. GILENYA [Suspect]
     Active Substance: FINGOLIMOD HYDROCHLORIDE
     Indication: MULTIPLE SCLEROSIS
     Dosage: 0.5 MG, QD
     Route: 048
     Dates: start: 20160104
  2. GILENYA [Suspect]
     Active Substance: FINGOLIMOD HYDROCHLORIDE
     Dosage: 0.5 MG, QD
     Route: 048
     Dates: start: 201604

REACTIONS (9)
  - Balance disorder [Unknown]
  - Dysstasia [Unknown]
  - Muscle spasms [Unknown]
  - Decreased interest [Unknown]
  - Post-traumatic stress disorder [Unknown]
  - Eye swelling [Unknown]
  - Depression [Unknown]
  - Myalgia [Unknown]
  - Memory impairment [Unknown]
